FAERS Safety Report 6784259-1 (Version None)
Quarter: 2010Q2

REPORT INFORMATION
  Report Type: 
  Country: None (occurrence: None)
  Receive Date: 20100622
  Receipt Date: 20100615
  Transmission Date: 20101027
  Serious: Yes (Hospitalization)
  Sender: FDA-Public Use
  Company Number: FR-SANOFI-AVENTIS-2010SA034538

PATIENT
  Age: 18 Year
  Sex: Female

DRUGS (4)
  1. ELOXATIN [Suspect]
     Route: 041
     Dates: start: 20100430, end: 20100430
  2. GEMZAR [Suspect]
     Route: 042
     Dates: start: 20100430, end: 20100430
  3. SORAFENIB [Suspect]
     Route: 042
     Dates: start: 20100501, end: 20100501
  4. ZOPHREN [Concomitant]
     Route: 048
     Dates: start: 20100430

REACTIONS (1)
  - TOXIC EPIDERMAL NECROLYSIS [None]
